FAERS Safety Report 19780843 (Version 1)
Quarter: 2021Q3

REPORT INFORMATION
  Report Type: Spontaneous
  Country: US (occurrence: US)
  Receive Date: 20210903
  Receipt Date: 20210903
  Transmission Date: 20211014
  Serious: No
  Sender: FDA-Public Use
  Company Number: US-PURDUE-USA-2020-0167074

PATIENT
  Sex: Male
  Weight: 92.97 kg

DRUGS (1)
  1. OXYCODONE/ ACETAMINOPHEN TABLETS [Suspect]
     Active Substance: ACETAMINOPHEN\OXYCODONE HYDROCHLORIDE
     Indication: PROCEDURAL PAIN
     Dosage: 10/325 MG, TID
     Route: 048
     Dates: start: 202005

REACTIONS (3)
  - Drug ineffective [Unknown]
  - Irritability [Unknown]
  - Restlessness [Unknown]
